FAERS Safety Report 8322205-X (Version None)
Quarter: 2012Q2

REPORT INFORMATION
  Report Type: 
  Country: None (occurrence: None)
  Receive Date: 20120430
  Receipt Date: 20120104
  Transmission Date: 20120825
  Serious: No
  Sender: FDA-Public Use
  Company Number: US-COVIDIEN/TYCO HEALTHCARE/MALLINCKRODT-T201102807

PATIENT
  Sex: Male

DRUGS (2)
  1. HYDROCODONE BITARTRATE + ACETAMINOPHEN [Suspect]
     Dosage: 1 TABLET QD
  2. HYDROCODONE BITARTRATE + ACETAMINOPHEN [Suspect]
     Dosage: 4 TABLETS QD

REACTIONS (2)
  - WITHDRAWAL SYNDROME [None]
  - DEREALISATION [None]
